FAERS Safety Report 8783772 (Version 3)
Quarter: 2018Q3

REPORT INFORMATION
  Report Type: Spontaneous
  Country: US (occurrence: US)
  Receive Date: 20120913
  Receipt Date: 20180822
  Transmission Date: 20181010
  Serious: Yes (Other)
  Sender: FDA-Public Use
  Company Number: US-ALLERGAN-1212370US

PATIENT
  Age: 74 Year
  Sex: Male

DRUGS (1)
  1. LUMIGAN [Suspect]
     Active Substance: BIMATOPROST
     Indication: INTRAOCULAR PRESSURE INCREASED
     Dosage: 2 GTT, QHS
     Route: 047
     Dates: start: 2008

REACTIONS (13)
  - Macular fibrosis [Unknown]
  - Accidental exposure to product [Unknown]
  - Retinal haemorrhage [Unknown]
  - Eye haemorrhage [Unknown]
  - Retinal vein occlusion [Unknown]
  - Cerebrovascular accident [Not Recovered/Not Resolved]
  - Vision blurred [Unknown]
  - Drug dose omission [Unknown]
  - Osteoarthritis [Not Recovered/Not Resolved]
  - Macular oedema [Recovered/Resolved]
  - Vasodilatation [Unknown]
  - Visual impairment [Unknown]
  - Visual acuity reduced [Recovering/Resolving]

NARRATIVE: CASE EVENT DATE: 2010
